FAERS Safety Report 7966542-7 (Version None)
Quarter: 2011Q4

REPORT INFORMATION
  Report Type: 
  Country: None (occurrence: None)
  Receive Date: 20111208
  Receipt Date: 20111129
  Transmission Date: 20120403
  Serious: Yes (Hospitalization)
  Sender: FDA-Public Use
  Company Number: DZ-ASTRAZENECA-2011SE72760

PATIENT
  Age: 45 Year
  Sex: Male

DRUGS (1)
  1. LIDOCAINE [Suspect]
     Route: 053
     Dates: start: 20090101

REACTIONS (2)
  - HYPOTONIA [None]
  - EYE MOVEMENT DISORDER [None]
